FAERS Safety Report 8618570-6 (Version None)
Quarter: 2012Q3

REPORT INFORMATION
  Report Type: 
  Country: None (occurrence: None)
  Receive Date: 20120824
  Receipt Date: 20120822
  Transmission Date: 20120928
  Serious: Yes (Hospitalization)
  Sender: FDA-Public Use
  Company Number: US-PFIZER INC-2012207018

PATIENT
  Age: 73 Year
  Sex: Male
  Weight: 70.295 kg

DRUGS (1)
  1. ZOSYN [Suspect]
     Dosage: UNK
     Route: 042
     Dates: start: 20110607

REACTIONS (4)
  - DIARRHOEA [None]
  - DYSPNOEA [None]
  - GALLBLADDER DISORDER [None]
  - CLOSTRIDIUM DIFFICILE COLITIS [None]
